FAERS Safety Report 21454135 (Version 4)
Quarter: 2023Q4

REPORT INFORMATION
  Report Type: Spontaneous
  Country: JP (occurrence: JP)
  Receive Date: 20221013
  Receipt Date: 20231211
  Transmission Date: 20240109
  Serious: Yes (Hospitalization)
  Sender: FDA-Public Use
  Company Number: JP-MSD-M2022-29347

PATIENT
  Age: 73 Year
  Sex: Male
  Weight: 75 kg

DRUGS (5)
  1. KEYTRUDA [Suspect]
     Active Substance: PEMBROLIZUMAB
     Indication: Lung adenocarcinoma stage III
     Dosage: 200 MILLIGRAM, Q3W
     Route: 041
     Dates: start: 20171121
  2. KEYTRUDA [Suspect]
     Active Substance: PEMBROLIZUMAB
     Indication: Lung adenocarcinoma recurrent
  3. COMIRNATY (TOZINAMERAN) [Suspect]
     Active Substance: TOZINAMERAN
     Dosage: UNK
     Route: 065
  4. COMIRNATY (TOZINAMERAN) [Suspect]
     Active Substance: TOZINAMERAN
     Dosage: UNK
     Route: 065
  5. SPIKEVAX (ELASOMERAN) [Suspect]
     Active Substance: ELASOMERAN
     Dosage: UNK
     Route: 030
     Dates: start: 20220321, end: 20220321

REACTIONS (2)
  - Adrenocorticotropic hormone deficiency [Recovering/Resolving]
  - Thyroid disorder [Recovering/Resolving]

NARRATIVE: CASE EVENT DATE: 20220301
